FAERS Safety Report 20480239 (Version 1)
Quarter: 2022Q1

REPORT INFORMATION
  Report Type: Spontaneous
  Country: ES (occurrence: ES)
  Receive Date: 20220216
  Receipt Date: 20220216
  Transmission Date: 20220423
  Serious: Yes (Hospitalization)
  Sender: FDA-Public Use
  Company Number: None

PATIENT
  Age: 50 Year
  Sex: Male

DRUGS (2)
  1. HUMALOG [Suspect]
     Active Substance: INSULIN LISPRO
     Indication: Diabetic ketoacidosis
     Dosage: UNK, UNKNOWN
     Route: 042
     Dates: start: 202201, end: 20220118
  2. HUMULIN NOS [Suspect]
     Active Substance: INSULIN HUMAN
     Indication: Diabetic ketoacidosis
     Dosage: UNK UNK, UNKNOWN
     Route: 042
     Dates: start: 202201, end: 20220118

REACTIONS (3)
  - Diabetic ketoacidosis [Unknown]
  - Condition aggravated [Unknown]
  - Wrong drug [Unknown]

NARRATIVE: CASE EVENT DATE: 20220118
